FAERS Safety Report 13213352 (Version 1)
Quarter: 2017Q1

REPORT INFORMATION
  Report Type: Spontaneous
  Country: US (occurrence: US)
  Receive Date: 20170209
  Receipt Date: 20170209
  Transmission Date: 20170428
  Serious: Yes (Other)
  Sender: FDA-Public Use
  Company Number: US-ALLERGAN-1675537US

PATIENT
  Age: 81 Year
  Sex: Female
  Weight: 78.91 kg

DRUGS (2)
  1. BOTOX [Suspect]
     Active Substance: ONABOTULINUMTOXINA
     Indication: NOCTURIA
  2. BOTOX [Suspect]
     Active Substance: ONABOTULINUMTOXINA
     Indication: URGE INCONTINENCE
     Dosage: 150 UNITS, SINGLE
     Route: 030
     Dates: start: 20161011, end: 20161011

REACTIONS (2)
  - Urinary retention [Recovered/Resolved]
  - Off label use [Unknown]

NARRATIVE: CASE EVENT DATE: 20161011
